FAERS Safety Report 5495061-5 (Version None)
Quarter: 2007Q4

REPORT INFORMATION
  Report Type: 
  Country: None (occurrence: None)
  Receive Date: 20071024
  Receipt Date: 20071010
  Transmission Date: 20080405
  Serious: Yes (Hospitalization)
  Sender: FDA-Public Use
  Company Number: GB-RANBAXY-2007RR-10635

PATIENT

DRUGS (5)
  1. RISPERIDONE 0.5MG FILM-COATED TABLETS [Suspect]
     Indication: PSYCHOTIC DISORDER
     Dosage: 1 MG, QD
  2. VALPROATE DE SODIUM RPG LP 500MG COMPRIME PELLICULE SECABLE A LIBERATI [Suspect]
     Indication: EPILEPSY
     Dosage: 1500 MG, QD
     Dates: start: 20000101
  3. RISPERIDONE 0.5MG FILM-COATED TABLETS [Suspect]
     Dosage: 2 MG, QD
  4. CITALOPRAM 10 MG TABLETS [Concomitant]
     Dosage: 40 MG, QD
  5. PROCYCLIDINE HYDROCHLORIDE 2MG TAB [Concomitant]
     Dosage: 5 MG, QD

REACTIONS (2)
  - HYPONATRAEMIA [None]
  - PANCYTOPENIA [None]
